FAERS Safety Report 9293752 (Version 2)
Quarter: 2013Q4

REPORT INFORMATION
  Report Type: Spontaneous
  Country: US (occurrence: US)
  Receive Date: 20130516
  Receipt Date: 20131111
  Transmission Date: 20140711
  Serious: No
  Sender: FDA-Public Use
  Company Number: US-B.I. PHARMACEUTICALS,INC./RIDGEFIELD-2013-BI-13768BP

PATIENT
  Age: 67 Year
  Sex: Female
  Weight: 56.7 kg

DRUGS (13)
  1. PRADAXA [Suspect]
     Indication: ANTICOAGULANT THERAPY
     Route: 048
     Dates: start: 20111201
  2. PRADAXA [Suspect]
     Indication: ATRIAL FIBRILLATION
  3. DICYCLOMINE [Concomitant]
     Dosage: 60 MG
     Route: 048
  4. FOLIC ACID [Concomitant]
     Route: 048
  5. LASIX [Concomitant]
     Dosage: 40 MG
     Route: 048
  6. MOTRIN [Concomitant]
     Indication: PAIN
     Route: 048
  7. METHOTREXATE [Concomitant]
     Route: 048
     Dates: start: 2002
  8. TOPROL XL [Concomitant]
     Dosage: 50 MG
     Route: 048
  9. PRILOSEC [Concomitant]
     Route: 048
  10. POTASSIUM CHLORIDE [Concomitant]
     Dosage: 40 MEQ
     Route: 048
  11. PREDNISONE [Concomitant]
     Dosage: 10 MG
     Route: 048
  12. COMPAZINE [Concomitant]
     Route: 048
  13. SYNTHROID [Concomitant]
     Dates: start: 1993

REACTIONS (2)
  - Visual acuity reduced [Unknown]
  - Vitreous haemorrhage [Unknown]
